FAERS Safety Report 19253770 (Version 1)
Quarter: 2021Q2

REPORT INFORMATION
  Report Type: Spontaneous
  Country: US (occurrence: US)
  Receive Date: 20210513
  Receipt Date: 20210513
  Transmission Date: 20210717
  Serious: Yes (Hospitalization)
  Sender: FDA-Public Use
  Company Number: None

PATIENT
  Age: 78 Year
  Sex: Male

DRUGS (3)
  1. OXALIPLATIN. [Suspect]
     Active Substance: OXALIPLATIN
     Indication: RECTAL CANCER
     Dosage: ?          OTHER FREQUENCY:SCHEDULED;?
     Route: 042
     Dates: start: 20201020
  2. ALBUTEROL INHALER [Concomitant]
     Active Substance: ALBUTEROL
     Dates: start: 20201026
  3. CAPECITABINE. [Suspect]
     Active Substance: CAPECITABINE
     Dosage: ?          OTHER FREQUENCY:SCHEDULED;?
     Route: 048
     Dates: start: 20201020

REACTIONS (3)
  - Electrocardiogram QT prolonged [None]
  - Chest pain [None]
  - Therapy interrupted [None]

NARRATIVE: CASE EVENT DATE: 20210511
